FAERS Safety Report 10225669 (Version 2)
Quarter: 2014Q2

REPORT INFORMATION
  Report Type: Spontaneous
  Country: US (occurrence: US)
  Receive Date: 20140609
  Receipt Date: 20140609
  Transmission Date: 20141212
  Serious: Yes (Other)
  Sender: FDA-Public Use
  Company Number: US-ASTELLAS-2013US010161

PATIENT
  Age: 72 Year
  Sex: Male

DRUGS (1)
  1. PROGRAF [Suspect]
     Indication: HEART TRANSPLANT
     Dosage: 5 MG, (3 MG IN MORNING AND 2 MG IN EVENING)
     Route: 048
     Dates: start: 2002

REACTIONS (1)
  - Lung adenocarcinoma stage I [Unknown]
